FAERS Safety Report 18961552 (Version 1)
Quarter: 2021Q1

REPORT INFORMATION
  Report Type: Spontaneous
  Country: US (occurrence: US)
  Receive Date: 20210302
  Receipt Date: 20210302
  Transmission Date: 20210420
  Serious: Yes (Hospitalization)
  Sender: FDA-Public Use
  Company Number: US-ASTRAZENECA-2021A084263

PATIENT
  Age: 64 Year
  Sex: Female

DRUGS (5)
  1. SYMBICORT [Suspect]
     Active Substance: BUDESONIDE\FORMOTEROL FUMARATE DIHYDRATE
     Indication: ASTHMA
     Dosage: 160?4.5 UG, 2 PUFFS, TWO TIMES A DAY
     Route: 055
     Dates: start: 2018
  2. FLOVENT [Concomitant]
     Active Substance: FLUTICASONE PROPIONATE
     Indication: ASTHMA
     Route: 055
  3. EPIPEN [Concomitant]
     Active Substance: EPINEPHRINE
     Indication: MULTIPLE ALLERGIES
     Dosage: AS REQUIRED
  4. ALLERGY SHOTS [Concomitant]
     Active Substance: UNSPECIFIED INGREDIENT
     Indication: MULTIPLE ALLERGIES
  5. PROAIR HFA [Concomitant]
     Active Substance: ALBUTEROL SULFATE
     Indication: ASTHMA
     Dosage: AS REQUIRED
     Route: 055

REACTIONS (11)
  - Ear discomfort [Unknown]
  - Intentional device misuse [Unknown]
  - Throat irritation [Not Recovered/Not Resolved]
  - Incorrect dose administered [Unknown]
  - Pneumonia [Recovered/Resolved]
  - Dysphonia [Not Recovered/Not Resolved]
  - Bronchitis [Recovered/Resolved]
  - Nausea [Recovered/Resolved]
  - Pharyngitis [Not Recovered/Not Resolved]
  - Vomiting [Recovered/Resolved]
  - Oropharyngeal pain [Not Recovered/Not Resolved]

NARRATIVE: CASE EVENT DATE: 2018
